FAERS Safety Report 9860539 (Version 1)
Quarter: 2014Q1

REPORT INFORMATION
  Report Type: Spontaneous
  Country: US (occurrence: US)
  Receive Date: 20140202
  Receipt Date: 20140202
  Transmission Date: 20141002
  Serious: Yes (Hospitalization, Other)
  Sender: FDA-Public Use
  Company Number: PHHY2014US009605

PATIENT
  Sex: Male

DRUGS (8)
  1. CLONAZEPAM [Suspect]
     Route: 064
  2. PAROXETINE [Suspect]
     Route: 064
  3. LAMOTRIGINE [Suspect]
     Route: 064
  4. QUETIAPINE [Suspect]
     Route: 064
  5. FLUOXETINE [Suspect]
     Route: 064
  6. LORAZEPAM [Suspect]
     Route: 064
  7. HALOPERIDOL [Suspect]
     Route: 064
  8. GLYBURIDE [Suspect]
     Route: 064

REACTIONS (4)
  - Premature baby [Unknown]
  - Transverse presentation [Unknown]
  - Apgar score low [Unknown]
  - Foetal exposure during pregnancy [Unknown]
